FAERS Safety Report 22387622 (Version 1)
Quarter: 2023Q2

REPORT INFORMATION
  Report Type: Spontaneous
  Country: CN (occurrence: None)
  Receive Date: 20230531
  Receipt Date: 20230531
  Transmission Date: 20230721
  Serious: Yes (Disabling)
  Sender: FDA-Public Use
  Company Number: CN-ROCHE-3355737

PATIENT
  Age: 45 Year
  Sex: Female
  Weight: 50 kg

DRUGS (4)
  1. TRASTUZUMAB [Suspect]
     Active Substance: TRASTUZUMAB
     Indication: Breast cancer
     Dosage: 09-FEB-2023, 02-MAR-2023, 23-MAR-2023, 13-APR-2023
     Route: 041
     Dates: start: 20230209
  2. DOCETAXEL [Concomitant]
     Active Substance: DOCETAXEL
     Indication: Breast cancer
     Dosage: 09-FEB-2023, 02-MAR-2023, 23-MAR-2023, 13-APR-2023
     Route: 041
     Dates: start: 20230209
  3. SODIUM CHLORIDE [Concomitant]
     Active Substance: SODIUM CHLORIDE
     Dosage: 09-FEB-2023, 02-MAR-2023, 23-MAR-2023, 13-APR-2023
     Route: 041
     Dates: start: 20230209
  4. CYCLOPHOSPHAMIDE [Concomitant]
     Active Substance: CYCLOPHOSPHAMIDE
     Indication: Breast cancer
     Dosage: 09-FEB-2023, 02-MAR-2023, 23-MAR-2023, 13-APR-2023
     Route: 041
     Dates: start: 20230209

REACTIONS (5)
  - Cardiac septal hypertrophy [Unknown]
  - Ventricular hypertrophy [Unknown]
  - Mitral valve incompetence [Unknown]
  - Dyspnoea [Unknown]
  - Hot flush [Unknown]

NARRATIVE: CASE EVENT DATE: 20230504
